FAERS Safety Report 9735831 (Version 2)
Quarter: 2015Q3

REPORT INFORMATION
  Report Type: Spontaneous
  Country: US (occurrence: US)
  Receive Date: 20131206
  Receipt Date: 20150804
  Transmission Date: 20151125
  Serious: No
  Sender: FDA-Public Use
  Company Number: US-GILEAD-2009-0023784

PATIENT
  Age: 77 Year
  Sex: Male
  Weight: 74.84 kg

DRUGS (13)
  1. SILDENAFIL. [Concomitant]
     Active Substance: SILDENAFIL
  2. OMEPRAZOLE. [Concomitant]
     Active Substance: OMEPRAZOLE
  3. WARFARIN [Concomitant]
     Active Substance: WARFARIN
  4. FUROSEMIDE. [Concomitant]
     Active Substance: FUROSEMIDE
  5. STOOL SOFTENER [Concomitant]
     Active Substance: DOCUSATE CALCIUM
  6. LETAIRIS [Suspect]
     Active Substance: AMBRISENTAN
     Indication: PULMONARY ARTERIAL HYPERTENSION
     Route: 048
     Dates: start: 20090617
  7. SIMVASTATIN. [Concomitant]
     Active Substance: SIMVASTATIN
  8. POTASSIUM [Concomitant]
     Active Substance: POTASSIUM
  9. BENAZEPRIL HCL [Concomitant]
     Active Substance: BENAZEPRIL HYDROCHLORIDE
  10. ASMANEX [Concomitant]
     Active Substance: MOMETASONE FUROATE
  11. THEOPHYLLINE [Concomitant]
     Active Substance: THEOPHYLLINE ANHYDROUS
  12. MULTIVITAMINS W/MINERALS [Concomitant]
  13. FORADIL [Concomitant]
     Active Substance: FORMOTEROL FUMARATE

REACTIONS (1)
  - Pain in extremity [Unknown]
